FAERS Safety Report 9333751 (Version 2)
Quarter: 2013Q3

REPORT INFORMATION
  Report Type: Spontaneous
  Country: US (occurrence: US)
  Receive Date: 20130606
  Receipt Date: 20130806
  Transmission Date: 20140515
  Serious: No
  Sender: FDA-Public Use
  Company Number: US-PFIZER INC-2013169032

PATIENT
  Age: 66 Year
  Sex: Female

DRUGS (1)
  1. AZITHROMYCIN [Suspect]
     Dosage: UNK (5 DAY DOSE PACK)

REACTIONS (2)
  - Drug hypersensitivity [Unknown]
  - Urticaria [Unknown]
